FAERS Safety Report 9158033 (Version 1)
Quarter: 2013Q1

REPORT INFORMATION
  Report Type: Spontaneous
  Country: SA (occurrence: None)
  Receive Date: 20130213
  Receipt Date: 20130213
  Transmission Date: 20140127
  Serious: Yes (Life-Threatening, Hospitalization)
  Sender: FDA-Public Use
  Company Number: 1597213

PATIENT
  Age: 23 Year
  Sex: Female

DRUGS (4)
  1. SODIUM BICARBONATE [Suspect]
     Indication: DIABETIC KETOACIDOSIS
     Dosage: 100 ML MILLILITRE(S), UNKNOWN, INTRAVENOUS BOLUS
     Route: 040
  2. INSULIN, REGULAR [Suspect]
     Indication: DIABETIC KETOACIDOSIS
     Dosage: 4 UNITS, UNKNOWN, INTRAVENOUS BOLUS?
     Route: 040
  3. SALINE [Concomitant]
  4. POTASSIUM CHLORIDE [Concomitant]

REACTIONS (12)
  - Cardiac arrest [None]
  - Arrhythmia [None]
  - Hypokalaemia [None]
  - Ventricular fibrillation [None]
  - Ventricular fibrillation [None]
  - Electrocardiogram QRS complex prolonged [None]
  - Blood chloride increased [None]
  - Blood sodium increased [None]
  - Anion gap increased [None]
  - Pneumonia aspiration [None]
  - Medication error [None]
  - Drug interaction [None]
